FAERS Safety Report 9121111 (Version 1)
Quarter: 2013Q1

REPORT INFORMATION
  Report Type: Spontaneous
  Country: ES (occurrence: ES)
  Receive Date: 20130226
  Receipt Date: 20130226
  Transmission Date: 20140127
  Serious: Yes (Other)
  Sender: FDA-Public Use
  Company Number: ES-TEVA-387656ISR

PATIENT
  Age: 21 Year
  Sex: Female

DRUGS (1)
  1. DRETINELLE [Suspect]
     Dosage: 1 DOSAGE FORMS DAILY;
     Route: 048

REACTIONS (1)
  - Abortion spontaneous [Recovered/Resolved]
